FAERS Safety Report 25082905 (Version 1)
Quarter: 2025Q1

REPORT INFORMATION
  Report Type: Spontaneous
  Country: KR (occurrence: KR)
  Receive Date: 20250317
  Receipt Date: 20250317
  Transmission Date: 20250409
  Serious: Yes (Death, Other)
  Sender: AMGEN
  Company Number: KR-AMGEN-KORSP2025046744

PATIENT

DRUGS (7)
  1. FILGRASTIM [Suspect]
     Active Substance: FILGRASTIM
     Indication: Neutropenia
     Route: 065
  2. CYCLOPHOSPHAMIDE [Concomitant]
     Active Substance: CYCLOPHOSPHAMIDE
  3. THYMOGLOBULIN [Concomitant]
     Active Substance: LAPINE T-LYMPHOCYTE IMMUNE GLOBULIN
  4. TACROLIMUS [Concomitant]
     Active Substance: TACROLIMUS
     Route: 065
  5. MYCOPHENOLATE MOFETIL [Concomitant]
     Active Substance: MYCOPHENOLATE MOFETIL
     Dosage: 3 GRAM, QD ( DAY 5 TO DAY 35)
  6. BUSULFAN [Concomitant]
     Active Substance: BUSULFAN
     Route: 065
  7. FLUDARABINE [Concomitant]
     Active Substance: FLUDARABINE PHOSPHATE

REACTIONS (9)
  - Infection [Fatal]
  - Haemorrhage intracranial [Fatal]
  - Acute graft versus host disease [Fatal]
  - Chronic graft versus host disease [Fatal]
  - Cytokine release syndrome [Unknown]
  - Cytomegalovirus infection reactivation [Unknown]
  - Epstein-Barr virus infection reactivation [Unknown]
  - Venoocclusive disease [Unknown]
  - Pyrexia [Recovered/Resolved]
